FAERS Safety Report 9426367 (Version 2)
Quarter: 2013Q4

REPORT INFORMATION
  Report Type: Spontaneous
  Country: US (occurrence: US)
  Receive Date: 20130730
  Receipt Date: 20131002
  Transmission Date: 20140711
  Serious: No
  Sender: FDA-Public Use
  Company Number: US-009507513-1307USA014610

PATIENT
  Age: 35 Year
  Sex: Female
  Weight: 68.27 kg

DRUGS (2)
  1. NEXPLANON [Suspect]
     Indication: CONTRACEPTION
     Dosage: 68 MG,ONCE EVERY THREE YEARS
     Route: 059
     Dates: start: 2013, end: 2013
  2. NEXPLANON [Suspect]
     Dosage: UNK
     Route: 059
     Dates: start: 2013

REACTIONS (2)
  - Device difficult to use [Recovered/Resolved]
  - Product quality issue [Unknown]
